FAERS Safety Report 26214412 (Version 1)
Quarter: 2025Q4

REPORT INFORMATION
  Report Type: Spontaneous
  Country: IN (occurrence: IN)
  Receive Date: 20251230
  Receipt Date: 20251230
  Transmission Date: 20260118
  Serious: Yes (Hospitalization, Other)
  Sender: INCYTE
  Company Number: IN-002147023-NVSC2025IN197090

PATIENT

DRUGS (1)
  1. RUXOLITINIB [Suspect]
     Active Substance: RUXOLITINIB
     Indication: Product used for unknown indication
     Dosage: 5 MG, BID
     Route: 061

REACTIONS (9)
  - Pharyngeal disorder [Unknown]
  - Graft versus host disease in gastrointestinal tract [Unknown]
  - Paroxysmal nocturnal haemoglobinuria [Unknown]
  - Bronchopulmonary aspergillosis [Recovered/Resolved]
  - Pseudomonas infection [Recovered/Resolved]
  - Acute kidney injury [Unknown]
  - Asthenia [Unknown]
  - Weight decreased [Unknown]
  - Dizziness [Unknown]
